FAERS Safety Report 8154582-7 (Version None)
Quarter: 2012Q1

REPORT INFORMATION
  Report Type: 
  Country: None (occurrence: None)
  Receive Date: 20120221
  Receipt Date: 20120214
  Transmission Date: 20120608
  Serious: Yes (Hospitalization)
  Sender: FDA-Public Use
  Company Number: CA-B.I. PHARMACEUTICALS,INC./RIDGEFIELD-2012-CN-00348CN

PATIENT
  Age: 64 Year
  Sex: Female
  Weight: 68.04 kg

DRUGS (23)
  1. DIMENHYDRINATE [Concomitant]
     Route: 030
  2. ACETAMINOPHEN [Concomitant]
     Route: 054
  3. DIMENHYDRINATE [Concomitant]
     Route: 042
  4. FUROSEMIDE [Concomitant]
     Route: 048
  5. HEPARIN SODIUM [Concomitant]
     Route: 058
  6. INSULIN [Concomitant]
     Route: 058
  7. ALBUTEROL SULFATE AUTOHALER [Concomitant]
     Route: 055
  8. ACETAMINOPHEN [Concomitant]
     Route: 048
  9. PRADAXA [Suspect]
     Dosage: 300 MG
     Route: 048
  10. ADVAIR DISKUS 100/50 [Concomitant]
     Route: 055
  11. GLYBURIDE [Concomitant]
     Route: 065
  12. SPIRIVA [Concomitant]
     Route: 055
  13. TEMSIROLIMUS [Concomitant]
     Route: 065
  14. ACETYLSALICYLIC ACID SRT [Concomitant]
     Route: 048
  15. RAMIPRIL [Concomitant]
     Route: 048
  16. SODIUM CHLORIDE [Concomitant]
     Route: 042
  17. TYLENOL W/ CODEINE NO. 3 [Concomitant]
     Route: 048
  18. DILTIAZEM HCL [Concomitant]
     Route: 048
  19. DIMENHYDRINATE [Concomitant]
     Route: 048
  20. LYRICA [Concomitant]
     Route: 048
  21. PRAMIPEXOLE DIHYCHLLORIDE [Concomitant]
     Route: 048
  22. METFORMIN HCL [Concomitant]
     Route: 048
  23. TYLENOL W/ CODEINE NO. 3 [Concomitant]
     Route: 048

REACTIONS (3)
  - HAEMOGLOBIN DECREASED [None]
  - HAEMOPTYSIS [None]
  - BLOOD CREATININE INCREASED [None]
